FAERS Safety Report 25425651 (Version 1)
Quarter: 2025Q2

REPORT INFORMATION
  Report Type: Spontaneous
  Country: ES (occurrence: ES)
  Receive Date: 20250611
  Receipt Date: 20250611
  Transmission Date: 20250716
  Serious: Yes (Other)
  Sender: JOHNSON AND JOHNSON
  Company Number: None

PATIENT
  Age: 38 Year
  Sex: Male

DRUGS (6)
  1. INFLIXIMAB [Suspect]
     Active Substance: INFLIXIMAB
     Indication: Colitis ulcerative
     Route: 042
     Dates: start: 20250109, end: 20250411
  2. ENTOCORD 2 MG TABLETS AND SOLVENT FOR RECTAL SUSPENSION [Concomitant]
     Indication: Product used for unknown indication
     Route: 054
     Dates: start: 20250110
  3. PENTASA 2 G EXTENDED-RELEASE GRANULES, 60 sachets [Concomitant]
     Indication: Product used for unknown indication
     Route: 048
     Dates: start: 20240409
  4. SALOFALK 1 g SUPPOSITORIES, 30 suppositories [Concomitant]
     Indication: Product used for unknown indication
     Route: 054
     Dates: start: 20190524
  5. NOLOTIL 575 mg HARD CAPSULES, 20 capsules [Concomitant]
     Indication: Product used for unknown indication
     Route: 048
     Dates: start: 20210620
  6. PARACETAMOL NORMON 1000 MG TABLETS EFG 40 tablets [Concomitant]
     Indication: Product used for unknown indication
     Route: 048
     Dates: start: 20210620

REACTIONS (1)
  - Dermatitis psoriasiform [Recovering/Resolving]

NARRATIVE: CASE EVENT DATE: 20250422
